FAERS Safety Report 5535021-9 (Version None)
Quarter: 2007Q4

REPORT INFORMATION
  Report Type: 
  Country: None (occurrence: None)
  Receive Date: 20071205
  Receipt Date: 20071123
  Transmission Date: 20080405
  Serious: Yes (Hospitalization)
  Sender: FDA-Public Use
  Company Number: AT-MERCK-0711AUT00019

PATIENT
  Age: 68 Year
  Sex: Male

DRUGS (7)
  1. COZAAR [Suspect]
     Indication: HYPERTENSION
     Route: 048
     Dates: end: 20071001
  2. COZAAR [Suspect]
     Route: 048
     Dates: start: 20071001
  3. HYZAAR [Suspect]
     Indication: HYPERTENSION
     Route: 048
     Dates: end: 20071001
  4. HYZAAR [Suspect]
     Route: 048
     Dates: start: 20071001
  5. METOPROLOL TARTRATE [Concomitant]
     Route: 065
  6. BICALUTAMIDE [Suspect]
     Indication: PROSTATE CANCER
     Route: 065
     Dates: end: 20071020
  7. HYZAAR [Suspect]
     Route: 048
     Dates: start: 20071001, end: 20071001

REACTIONS (2)
  - BLOOD PRESSURE SYSTOLIC INCREASED [None]
  - NAUSEA [None]
